FAERS Safety Report 8489130-5 (Version None)
Quarter: 2012Q3

REPORT INFORMATION
  Report Type: 
  Country: None (occurrence: None)
  Receive Date: 20120705
  Receipt Date: 20120704
  Transmission Date: 20120928
  Serious: Yes (Other)
  Sender: FDA-Public Use
  Company Number: PHHO2012US002650

PATIENT
  Sex: Female

DRUGS (5)
  1. ASPIRIN [Concomitant]
  2. GILENYA [Suspect]
     Dosage: UNK
     Route: 048
     Dates: start: 20120305, end: 20120514
  3. GILENYA [Suspect]
     Dosage: UNK
     Route: 048
     Dates: start: 20120206, end: 20120209
  4. SODIUM CHLORIDE [Concomitant]
     Dosage: 1000 ML, UNK
     Route: 042
  5. NITROGLYCERIN [Concomitant]

REACTIONS (1)
  - VIRAL INFECTION [None]
